FAERS Safety Report 23743720 (Version 1)
Quarter: 2024Q2

REPORT INFORMATION
  Report Type: Spontaneous
  Country: GB (occurrence: GB)
  Receive Date: 20240415
  Receipt Date: 20240415
  Transmission Date: 20240716
  Serious: Yes (Other)
  Sender: FDA-Public Use
  Company Number: None

PATIENT
  Age: 67 Year
  Sex: Male

DRUGS (19)
  1. DEXAMETHASONE [Suspect]
     Active Substance: DEXAMETHASONE
     Dosage: 6MG DAILY REDUCING REGIME
     Route: 065
     Dates: start: 20240307
  2. FENTANYL [Concomitant]
     Active Substance: FENTANYL\FENTANYL CITRATE
  3. ATORVASTATIN [Concomitant]
     Active Substance: ATORVASTATIN
  4. RAMIPRIL [Concomitant]
     Active Substance: RAMIPRIL
  5. LANTUS [Concomitant]
     Active Substance: INSULIN GLARGINE
  6. FUROSEMIDE [Concomitant]
     Active Substance: FUROSEMIDE
  7. APIXABAN [Concomitant]
     Active Substance: APIXABAN
  8. AMLODIPINE [Concomitant]
     Active Substance: AMLODIPINE BESYLATE
  9. OMEPRAZOLE [Concomitant]
     Active Substance: OMEPRAZOLE
  10. ACETAMINOPHEN [Concomitant]
     Active Substance: ACETAMINOPHEN
  11. CARVEDILOL [Concomitant]
     Active Substance: CARVEDILOL
  12. OXYCODONE [Concomitant]
     Active Substance: OXYCODONE\OXYCODONE HYDROCHLORIDE
  13. SILDENAFIL [Concomitant]
     Active Substance: SILDENAFIL
  14. CELECOXIB [Concomitant]
     Active Substance: CELECOXIB
  15. NOVORAPID [Concomitant]
     Active Substance: INSULIN ASPART
  16. PREGABALIN [Concomitant]
     Active Substance: PREGABALIN
  17. DOCUSATE [Concomitant]
     Active Substance: DOCUSATE
  18. CYCLIZINE [Concomitant]
     Active Substance: CYCLIZINE
  19. AMITRIPTYLINE [Concomitant]
     Active Substance: AMITRIPTYLINE

REACTIONS (1)
  - Psychotic disorder [Recovered/Resolved]
